FAERS Safety Report 5151197-X (Version None)
Quarter: 2006Q4

REPORT INFORMATION
  Report Type: 
  Country: None (occurrence: None)
  Receive Date: 20061113
  Receipt Date: 20061113
  Transmission Date: 20070319
  Serious: Yes (Disabling)
  Sender: FDA-Public Use
  Company Number: None

PATIENT
  Age: 47 Year
  Sex: Female
  Weight: 53.5244 kg

DRUGS (2)
  1. ABILIFY [Suspect]
     Indication: BIPOLAR I DISORDER
     Dosage: FEB. 2, 06 ONCE DAILY MOUTH
     Route: 048
     Dates: start: 20060202, end: 20060313
  2. ABILIFY [Suspect]
     Indication: BIPOLAR I DISORDER
     Dosage: MARCH 13, 06 ONCE DAILY MOUTH
     Route: 048
     Dates: start: 20060313, end: 20060511

REACTIONS (3)
  - AKATHISIA [None]
  - ANXIETY [None]
  - LOSS OF LIBIDO [None]
